FAERS Safety Report 18655388 (Version 1)
Quarter: 2020Q4

REPORT INFORMATION
  Report Type: Spontaneous
  Country: GB (occurrence: GB)
  Receive Date: 20201223
  Receipt Date: 20201223
  Transmission Date: 20210114
  Serious: Yes (Other)
  Sender: FDA-Public Use
  Company Number: NVSC2020GB335940

PATIENT
  Age: 73 Year
  Sex: Female

DRUGS (29)
  1. TRASTUZUMAB. [Suspect]
     Active Substance: TRASTUZUMAB
     Indication: BREAST CANCER METASTATIC
     Dosage: UNK (INFUSION, SOLUTION)
     Route: 042
     Dates: start: 20160516, end: 20160610
  2. LOSARTAN. [Concomitant]
     Active Substance: LOSARTAN
     Indication: PRODUCT USED FOR UNKNOWN INDICATION
     Dosage: 50 MG, QD
     Route: 048
  3. ADCAL D3 [Concomitant]
     Active Substance: CALCIUM CARBONATE\CHOLECALCIFEROL
     Indication: PRODUCT USED FOR UNKNOWN INDICATION
     Dosage: UNK
     Route: 048
     Dates: start: 20161012
  4. SERTRALINE [Concomitant]
     Active Substance: SERTRALINE HYDROCHLORIDE
     Indication: PRODUCT USED FOR UNKNOWN INDICATION
     Dosage: 50 MG, QD
     Route: 048
  5. PERTUZUMAB. [Suspect]
     Active Substance: PERTUZUMAB
     Dosage: 420 MG, TIW
     Route: 042
     Dates: start: 20160701
  6. TRASTUZUMAB. [Suspect]
     Active Substance: TRASTUZUMAB
     Dosage: 525 MG, TIW (INFUSION, SOLUTION)
     Route: 042
     Dates: start: 20160701, end: 20160812
  7. TRASTUZUMAB. [Suspect]
     Active Substance: TRASTUZUMAB
     Dosage: 546 MG, TIW (INFUSION, SOLUTION)
     Route: 042
     Dates: start: 20180521, end: 20180903
  8. LOPERAMIDE [Concomitant]
     Active Substance: LOPERAMIDE
     Indication: DIARRHOEA
     Dosage: UNK
     Route: 048
     Dates: start: 20160831, end: 20161012
  9. DOCETAXEL. [Suspect]
     Active Substance: DOCETAXEL
     Indication: BREAST CANCER METASTATIC
     Dosage: UNK
     Route: 042
     Dates: start: 20160516, end: 20160610
  10. TRASTUZUMAB. [Suspect]
     Active Substance: TRASTUZUMAB
     Dosage: 504 MG, TIW (INFUSION, SOLUTION)
     Route: 042
     Dates: start: 20170522, end: 20180219
  11. TRASTUZUMAB. [Suspect]
     Active Substance: TRASTUZUMAB
     Dosage: 525 MG, TIW (INFUSION, SOLUTION)
     Route: 042
     Dates: start: 20180312, end: 20180430
  12. TRASTUZUMAB. [Suspect]
     Active Substance: TRASTUZUMAB
     Dosage: 588 MG, TIW (INFUSION, SOLUTION)
     Route: 042
     Dates: start: 20180924, end: 20190520
  13. LOSEC [Concomitant]
     Active Substance: OMEPRAZOLE
     Indication: PRODUCT USED FOR UNKNOWN INDICATION
     Dosage: 10 MG, QD
     Route: 048
  14. DOXYCYCLINE. [Concomitant]
     Active Substance: DOXYCYCLINE
     Indication: LOWER RESPIRATORY TRACT INFECTION
     Dosage: UNK
     Route: 048
     Dates: start: 201708
  15. PIRITON [Concomitant]
     Active Substance: CHLORPHENIRAMINE MALEATE
     Indication: PRURITUS
     Dosage: UNK
     Route: 047
     Dates: start: 20180815
  16. ANASTROZOLE. [Suspect]
     Active Substance: ANASTROZOLE
     Indication: BREAST CANCER METASTATIC
     Dosage: 1 MG
     Route: 048
     Dates: start: 20161012
  17. ONDANSETRON [Concomitant]
     Active Substance: ONDANSETRON
     Indication: NAUSEA
     Dosage: 4 MG
     Route: 048
     Dates: start: 20161012, end: 20161109
  18. PERTUZUMAB. [Suspect]
     Active Substance: PERTUZUMAB
     Indication: BREAST CANCER METASTATIC
     Dosage: UNK
     Route: 042
     Dates: start: 20160516, end: 20160610
  19. TRASTUZUMAB. [Suspect]
     Active Substance: TRASTUZUMAB
     Dosage: 493.5 MG, TIW (INFUSION, SOLUTION)
     Route: 042
     Dates: start: 20160923, end: 20160923
  20. TRASTUZUMAB. [Suspect]
     Active Substance: TRASTUZUMAB
     Dosage: 483 MG, TIW (INFUSION, SOLUTION)
     Route: 042
     Dates: start: 20161018, end: 20170428
  21. HYPROMELLOSE [Concomitant]
     Active Substance: HYPROMELLOSES
     Indication: EYE PAIN
     Dosage: UNK
     Route: 047
     Dates: start: 20160831, end: 20161012
  22. CHLORPHENAMINE [Concomitant]
     Active Substance: CHLORPHENIRAMINE MALEATE
     Indication: PRODUCT USED FOR UNKNOWN INDICATION
     Dosage: 10 MG (3 WEEKLY WITH DOCETAXEL)
     Route: 042
     Dates: start: 20160701, end: 20160902
  23. DOCETAXEL. [Suspect]
     Active Substance: DOCETAXEL
     Dosage: 140 MG, TIW
     Route: 042
     Dates: start: 20160701, end: 20160902
  24. TRASTUZUMAB. [Suspect]
     Active Substance: TRASTUZUMAB
     Dosage: 504 MG, TIW (INFUSION, SOLUTION)
     Route: 042
     Dates: start: 20160902, end: 20160902
  25. TRASTUZUMAB. [Suspect]
     Active Substance: TRASTUZUMAB
     Dosage: 504 MG, TIW (INFUSION, SOLUTION)
     Route: 042
     Dates: start: 20190610, end: 20190902
  26. DIFFLAM [Concomitant]
     Active Substance: BENZYDAMINE HYDROCHLORIDE
     Indication: PRODUCT USED FOR UNKNOWN INDICATION
     Dosage: 10 ML
     Route: 048
     Dates: start: 20160701, end: 20160902
  27. METOCLOPRAMIDE. [Concomitant]
     Active Substance: METOCLOPRAMIDE
     Indication: PRODUCT USED FOR UNKNOWN INDICATION
     Dosage: UNK
     Route: 048
     Dates: start: 20160701, end: 20160902
  28. DENOSUMAB [Concomitant]
     Active Substance: DENOSUMAB
     Indication: PRODUCT USED FOR UNKNOWN INDICATION
     Dosage: UNK (6 WEEKLY)
     Route: 058
     Dates: start: 20160706
  29. HYDROCORTISONE. [Concomitant]
     Active Substance: HYDROCORTISONE
     Indication: PRODUCT USED FOR UNKNOWN INDICATION
     Dosage: 100 MG
     Route: 042
     Dates: start: 20160701, end: 20160902

REACTIONS (1)
  - Cardiac failure [Recovered/Resolved]

NARRATIVE: CASE EVENT DATE: 20190805
